FAERS Safety Report 25427343 (Version 4)
Quarter: 2025Q3

REPORT INFORMATION
  Report Type: Spontaneous
  Country: US (occurrence: US)
  Receive Date: 20250612
  Receipt Date: 20250919
  Transmission Date: 20251020
  Serious: No
  Sender: BRISTOL-MYERS SQUIBB COMPANY
  Company Number: US-BRISTOL-MYERS SQUIBB COMPANY-2025-083473

PATIENT
  Age: 68 Year
  Sex: Female

DRUGS (2)
  1. POMALYST [Suspect]
     Active Substance: POMALIDOMIDE
     Indication: Plasma cell myeloma
  2. POMALYST [Suspect]
     Active Substance: POMALIDOMIDE

REACTIONS (9)
  - Anxiety [Unknown]
  - Diarrhoea [Unknown]
  - Dizziness [Unknown]
  - Pyrexia [Unknown]
  - Insomnia [Unknown]
  - Visual impairment [Unknown]
  - Asthenia [Unknown]
  - Pain [Unknown]
  - Off label use [Unknown]
